FAERS Safety Report 22059126 (Version 1)
Quarter: 2023Q1

REPORT INFORMATION
  Report Type: Report from Study
  Country: IT (occurrence: IT)
  Receive Date: 20230303
  Receipt Date: 20230303
  Transmission Date: 20230418
  Serious: Yes (Death)
  Sender: FDA-Public Use
  Company Number: IT-009507513-2301ITA007901

PATIENT
  Age: 72 Year
  Sex: Female

DRUGS (3)
  1. DOXORUBICIN [Suspect]
     Active Substance: DOXORUBICIN
     Indication: Breast cancer
     Dosage: 97.8 MILLIGRAM DAILY; TOTAL DAILY DOSE: 97.8 MILLIGRAM
     Dates: start: 20221215, end: 20221215
  2. PEMBROLIZUMAB [Suspect]
     Active Substance: PEMBROLIZUMAB
     Indication: Breast cancer
     Dosage: 200 MILLIGRAM DAILY; TOTAL DAILY DOSE: 200 MILLIGRAM
     Dates: start: 20221215, end: 20221215
  3. CYCLOPHOSPHAMIDE [Suspect]
     Active Substance: CYCLOPHOSPHAMIDE
     Indication: Breast cancer
     Dosage: 978 MILLIGRAM DAILY; TOTAL DAILY DOSE: 978 MILLIGRAM
     Dates: start: 20221215, end: 20221215

REACTIONS (1)
  - Sepsis [Fatal]

NARRATIVE: CASE EVENT DATE: 20221223
